FAERS Safety Report 12526739 (Version 1)
Quarter: 2016Q3

REPORT INFORMATION
  Report Type: Spontaneous
  Country: US (occurrence: None)
  Receive Date: 20160701
  Receipt Date: 20160701
  Transmission Date: 20161109
  Serious: Yes (Hospitalization)
  Sender: FDA-Public Use
  Company Number: None

PATIENT
  Age: 27 Year
  Sex: Male

DRUGS (10)
  1. PULMOZYME [Concomitant]
     Active Substance: DORNASE ALFA
  2. AQUADEKS [Concomitant]
     Active Substance: MINERALS\VITAMINS
  3. FLUTICASONE [Concomitant]
     Active Substance: FLUTICASONE\FLUTICASONE PROPIONATE
  4. CREON [Concomitant]
     Active Substance: PANCRELIPASE AMYLASE\PANCRELIPASE LIPASE\PANCRELIPASE PROTEASE
  5. ORKAMBI [Suspect]
     Active Substance: IVACAFTOR\LUMACAFTOR
     Indication: CYSTIC FIBROSIS
     Route: 048
  6. ADEKS [Concomitant]
  7. TOBRAMYCIN. [Concomitant]
     Active Substance: TOBRAMYCIN
  8. GENTAMICIN. [Concomitant]
     Active Substance: GENTAMICIN
  9. MINOCYCLINE [Concomitant]
     Active Substance: MINOCYCLINE\MINOCYCLINE HYDROCHLORIDE
  10. SODIUM CHLORIDE. [Concomitant]
     Active Substance: SODIUM CHLORIDE

REACTIONS (1)
  - Infection [None]

NARRATIVE: CASE EVENT DATE: 201606
